FAERS Safety Report 4286605-X (Version None)
Quarter: 2004Q1

REPORT INFORMATION
  Report Type: 
  Country: None (occurrence: None)
  Receive Date: 20040204
  Receipt Date: 20040202
  Transmission Date: 20041129
  Serious: Yes (Hospitalization)
  Sender: FDA-Public Use
  Company Number: STA-AE-04-MTX-041

PATIENT
  Sex: Male

DRUGS (2)
  1. METHOTREXATE [Suspect]
     Dosage: 15 MG
     Dates: start: 20031001
  2. ARAVA [Suspect]
     Dosage: 20 MG
     Dates: start: 20031001

REACTIONS (1)
  - ABSCESS SOFT TISSUE [None]
